FAERS Safety Report 9907975 (Version 2)
Quarter: 2014Q1

REPORT INFORMATION
  Report Type: Report from Study
  Country: FR (occurrence: FR)
  Receive Date: 20140219
  Receipt Date: 20140220
  Transmission Date: 20141002
  Serious: Yes (Hospitalization)
  Sender: FDA-Public Use
  Company Number: FR-ROCHE-1350175

PATIENT
  Sex: Female

DRUGS (22)
  1. RITUXIMAB [Suspect]
     Indication: RHEUMATOID ARTHRITIS
     Dosage: DAY 1
     Route: 041
     Dates: start: 20080910
  2. RITUXIMAB [Suspect]
     Dosage: DAY 15
     Route: 041
     Dates: start: 20080925
  3. RITUXIMAB [Suspect]
     Dosage: DAY 1
     Route: 041
     Dates: start: 20090318
  4. RITUXIMAB [Suspect]
     Dosage: DAY 1
     Route: 041
     Dates: start: 20091015
  5. RITUXIMAB [Suspect]
     Dosage: DAY 15
     Route: 041
     Dates: start: 20091030
  6. RITUXIMAB [Suspect]
     Dosage: DAY 1
     Route: 041
     Dates: start: 20100514
  7. RITUXIMAB [Suspect]
     Dosage: DAY 15
     Route: 041
     Dates: start: 20100531
  8. RITUXIMAB [Suspect]
     Dosage: DAY 1
     Route: 041
     Dates: start: 20101124
  9. RITUXIMAB [Suspect]
     Dosage: DAY 15
     Route: 041
     Dates: start: 20101209
  10. RITUXIMAB [Suspect]
     Dosage: DAY 1
     Route: 041
     Dates: start: 20110610
  11. RITUXIMAB [Suspect]
     Dosage: DAY 15
     Route: 041
     Dates: start: 20110624
  12. RITUXIMAB [Suspect]
     Dosage: DAY 1
     Route: 041
     Dates: start: 20111215
  13. RITUXIMAB [Suspect]
     Dosage: DAY 15
     Route: 041
     Dates: start: 20120102, end: 20120515
  14. METHOTREXATE [Concomitant]
     Route: 065
  15. METHOTREXATE [Concomitant]
     Route: 065
  16. CORTANCYL [Concomitant]
     Route: 065
  17. CORTANCYL [Concomitant]
     Route: 065
  18. CORTANCYL [Concomitant]
     Route: 065
  19. CORTANCYL [Concomitant]
     Route: 065
  20. CORTANCYL [Concomitant]
     Route: 065
  21. ORENCIA [Concomitant]
     Route: 065
     Dates: start: 20130430
  22. ROACTEMRA [Concomitant]
     Route: 065
     Dates: start: 20120703, end: 20130430

REACTIONS (3)
  - Cholelithiasis [Recovered/Resolved]
  - Ovarian cyst [Recovered/Resolved]
  - Lung disorder [Recovered/Resolved]
